FAERS Safety Report 6106946-0 (Version None)
Quarter: 2009Q1

REPORT INFORMATION
  Report Type: 
  Country: None (occurrence: None)
  Receive Date: 20090305
  Receipt Date: 20090305
  Transmission Date: 20090719
  Serious: Yes (Other)
  Sender: FDA-Public Use
  Company Number: None

PATIENT
  Sex: Female
  Weight: 58.9676 kg

DRUGS (1)
  1. ALENDRONATE SODIUM [Suspect]
     Indication: OSTEOPOROSIS
     Dosage: 1 TABLET WEEKLY ORALLY
     Route: 048
     Dates: start: 20090111, end: 20090208

REACTIONS (2)
  - BACK PAIN [None]
  - PRODUCT QUALITY ISSUE [None]
